FAERS Safety Report 6781128-8 (Version None)
Quarter: 2010Q2

REPORT INFORMATION
  Report Type: 
  Country: None (occurrence: None)
  Receive Date: 20100621
  Receipt Date: 20100611
  Transmission Date: 20101027
  Serious: Yes (Hospitalization, Other)
  Sender: FDA-Public Use
  Company Number: AU-BRISTOL-MYERS SQUIBB COMPANY-15112485

PATIENT
  Age: 44 Year
  Sex: Female
  Weight: 58 kg

DRUGS (3)
  1. CETUXIMAB [Suspect]
     Indication: NON-SMALL CELL LUNG CANCER
     Dosage: CETUXIMAB 5 MG/ML RECENT INFUSION:06MAY2010. 18FEB10-13MAY10(83D) RESTARTED ON 29MAY10-ONGOING
     Route: 042
     Dates: start: 20100218
  2. CARBOPLATIN [Suspect]
     Indication: NON-SMALL CELL LUNG CANCER
     Dosage: ON DAY 1 OF 21-DAY CYCLE;1DF=4AUC RECENT INFUSION:29APR10 REDUCED TO 4 AUC
     Route: 042
     Dates: start: 20100218
  3. GEMCITABINE HCL [Suspect]
     Indication: NON-SMALL CELL LUNG CANCER
     Dosage: RECENT INFUSION:06MAY10 DAY 1,8 OF 21-DAY CYCLE
     Route: 042
     Dates: start: 20100218

REACTIONS (2)
  - PANCYTOPENIA [None]
  - THROMBOPHLEBITIS [None]
